FAERS Safety Report 21255638 (Version 3)
Quarter: 2022Q3

REPORT INFORMATION
  Report Type: Report from Study
  Country: DE (occurrence: DE)
  Receive Date: 20220825
  Receipt Date: 20220907
  Transmission Date: 20221027
  Serious: Yes (Hospitalization, Other)
  Sender: FDA-Public Use
  Company Number: DE-MYLANLABS-2022M1088693

PATIENT
  Sex: Female

DRUGS (4)
  1. METHOTREXATE [Suspect]
     Active Substance: METHOTREXATE
     Indication: Psoriatic arthropathy
     Dosage: 15 MILLIGRAM
     Route: 048
     Dates: start: 20190313, end: 20190529
  2. ETORICOXIB [Suspect]
     Active Substance: ETORICOXIB
     Indication: Psoriatic arthropathy
     Dosage: 60 MILLIGRAM
     Route: 065
     Dates: start: 20190604, end: 20190615
  3. AZATHIOPRINE [Suspect]
     Active Substance: AZATHIOPRINE
     Indication: Psoriatic arthropathy
     Dosage: 150 MILLIGRAM
     Route: 065
     Dates: start: 20200110
  4. METHOTREXATE SODIUM [Suspect]
     Active Substance: METHOTREXATE SODIUM
     Indication: Psoriatic arthropathy
     Dosage: 15 MILLIGRAM
     Route: 058
     Dates: start: 19910628, end: 20200109

REACTIONS (5)
  - Collagen disorder [Unknown]
  - Pericardial effusion [Unknown]
  - Bronchitis [Unknown]
  - Proteinuria [Unknown]
  - Oral herpes [Unknown]

NARRATIVE: CASE EVENT DATE: 20200108
